FAERS Safety Report 7705812-4 (Version None)
Quarter: 2011Q3

REPORT INFORMATION
  Report Type: 
  Country: None (occurrence: None)
  Receive Date: 20110824
  Receipt Date: 20110815
  Transmission Date: 20111222
  Serious: Yes (Other)
  Sender: FDA-Public Use
  Company Number: CA-ELI_LILLY_AND_COMPANY-CA201108004599

PATIENT
  Sex: Male

DRUGS (5)
  1. BUPROPION HCL [Concomitant]
  2. TRAZODONE HCL [Concomitant]
  3. LORAZEPAM [Concomitant]
  4. ZYPREXA [Suspect]
     Dosage: 5 MG, QID
  5. BUSPIRONE [Concomitant]

REACTIONS (8)
  - ANGINA PECTORIS [None]
  - LIVER FUNCTION TEST ABNORMAL [None]
  - DIABETES MELLITUS [None]
  - UPPER RESPIRATORY TRACT INFECTION [None]
  - MYOCARDIAL INFARCTION [None]
  - HYPERTENSION [None]
  - HYPERLIPIDAEMIA [None]
  - ANTIPHOSPHOLIPID SYNDROME [None]
